FAERS Safety Report 5638953-6 (Version None)
Quarter: 2008Q1

REPORT INFORMATION
  Report Type: 
  Country: None (occurrence: None)
  Receive Date: 20080226
  Receipt Date: 20080215
  Transmission Date: 20080703
  Serious: Yes (Other)
  Sender: FDA-Public Use
  Company Number: US-ROCHE-527259

PATIENT
  Sex: Male
  Weight: 99.8 kg

DRUGS (1)
  1. ACCUTANE [Suspect]
     Indication: ACNE
     Route: 065
     Dates: start: 19980201, end: 19980401

REACTIONS (7)
  - AMOEBIASIS [None]
  - APPENDICEAL ABSCESS [None]
  - CROHN'S DISEASE [None]
  - EMOTIONAL DISTRESS [None]
  - ILEUS [None]
  - INFLAMMATORY BOWEL DISEASE [None]
  - MELANOCYTIC NAEVUS [None]
